FAERS Safety Report 18963737 (Version 2)
Quarter: 2021Q1

REPORT INFORMATION
  Report Type: Spontaneous
  Country: BR (occurrence: BR)
  Receive Date: 20210303
  Receipt Date: 20210318
  Transmission Date: 20210420
  Serious: Yes (Death, Hospitalization, Other)
  Sender: FDA-Public Use
  Company Number: BR-BRISTOL-MYERS SQUIBB COMPANY-BMS-2021-015300

PATIENT
  Age: 83 Year
  Sex: Male

DRUGS (3)
  1. AMOXICILLIN TRIHYDRATE AND CLAVULANATE POTASSIUM [Concomitant]
     Active Substance: AMOXICILLIN\CLAVULANATE POTASSIUM
     Indication: PRODUCT USED FOR UNKNOWN INDICATION
     Route: 065
  2. OPDIVO [Suspect]
     Active Substance: NIVOLUMAB
     Indication: MALIGNANT MELANOMA
     Dosage: 180 MILLIGRAMS EVERY 15 DAYS
     Route: 065
     Dates: start: 202101
  3. ANTIBIOTICS [Concomitant]
     Active Substance: UNSPECIFIED INGREDIENT
     Indication: PRODUCT USED FOR UNKNOWN INDICATION
     Dosage: UNK
     Route: 065

REACTIONS (7)
  - Urinary tract infection [Unknown]
  - Diarrhoea [Unknown]
  - Cardio-respiratory arrest [Fatal]
  - Asthenia [Unknown]
  - Off label use [Unknown]
  - General physical health deterioration [Unknown]
  - Decreased appetite [Unknown]

NARRATIVE: CASE EVENT DATE: 20210210
